FAERS Safety Report 20353316 (Version 1)
Quarter: 2022Q1

REPORT INFORMATION
  Report Type: Spontaneous
  Country: US (occurrence: US)
  Receive Date: 20220119
  Receipt Date: 20220119
  Transmission Date: 20220423
  Serious: Yes (Other)
  Sender: FDA-Public Use
  Company Number: US-ELI_LILLY_AND_COMPANY-US202201003536

PATIENT
  Age: 4 Year
  Sex: Male
  Weight: 15.7 kg

DRUGS (2)
  1. ETESEVIMAB [Suspect]
     Active Substance: ETESEVIMAB
     Indication: Prophylaxis
     Dosage: 350 MG (10 ML), SINGLE
     Route: 042
     Dates: start: 20220104, end: 20220104
  2. BAMLANIVIMAB [Suspect]
     Active Substance: BAMLANIVIMAB
     Indication: Prophylaxis
     Dosage: 175 MG (5 ML), SINGLE
     Route: 042
     Dates: start: 20220104, end: 20220104

REACTIONS (4)
  - Cough [Unknown]
  - Flushing [Unknown]
  - Cyanosis [Unknown]
  - Oxygen saturation decreased [Unknown]

NARRATIVE: CASE EVENT DATE: 20220104
